FAERS Safety Report 7452409-X (Version None)
Quarter: 2011Q2

REPORT INFORMATION
  Report Type: 
  Country: None (occurrence: None)
  Receive Date: 20110502
  Receipt Date: 20101006
  Transmission Date: 20111010
  Serious: No
  Sender: FDA-Public Use
  Company Number: US-ASTRAZENECA-2010SE47129

PATIENT
  Age: 20512 Day
  Sex: Male
  Weight: 104.8 kg

DRUGS (4)
  1. NEXIUM [Suspect]
     Route: 048
  2. TRAMADOL [Concomitant]
  3. AMBIEN [Concomitant]
  4. PROMETHAZINE [Concomitant]

REACTIONS (4)
  - VOMITING [None]
  - DEHYDRATION [None]
  - DRUG DOSE OMISSION [None]
  - DIARRHOEA [None]
